FAERS Safety Report 6889795-5 (Version None)
Quarter: 2010Q3

REPORT INFORMATION
  Report Type: 
  Country: None (occurrence: None)
  Receive Date: 20100730
  Receipt Date: 20080513
  Transmission Date: 20110219
  Serious: Yes (Other)
  Sender: FDA-Public Use
  Company Number: US-PFIZER INC-2008032169

PATIENT
  Sex: Female
  Weight: 60.8 kg

DRUGS (13)
  1. LIPITOR [Suspect]
     Indication: BLOOD CHOLESTEROL
     Dates: start: 20080101
  2. PLAVIX [Suspect]
     Dates: start: 20080101
  3. METHOTREXATE [Concomitant]
     Dosage: 5 EVERY 1 WEEKS
  4. CELEBREX [Concomitant]
  5. OMEPRAZOLE [Concomitant]
  6. INDAPAMIDE [Concomitant]
  7. DILTIAZEM [Concomitant]
  8. ACETYLSALICYLIC ACID SRT [Concomitant]
  9. CALCIUM WITH VITAMIN D [Concomitant]
  10. ASCORBIC ACID [Concomitant]
  11. FOLIC ACID [Concomitant]
  12. FISH OIL [Concomitant]
  13. COENZYME Q10 [Concomitant]

REACTIONS (2)
  - CONTUSION [None]
  - HEADACHE [None]
